FAERS Safety Report 22066392 (Version 1)
Quarter: 2023Q1

REPORT INFORMATION
  Report Type: Spontaneous
  Country: None (occurrence: AU)
  Receive Date: 20230306
  Receipt Date: 20230306
  Transmission Date: 20230418
  Serious: Yes (Other)
  Sender: FDA-Public Use
  Company Number: AU-Ascend Therapeutics US, LLC-2138727

PATIENT
  Age: 46 Year
  Sex: Male

DRUGS (4)
  1. ANDROGEL [Suspect]
     Active Substance: TESTOSTERONE
     Indication: Product used for unknown indication
     Route: 065
  2. TESTOSTERONE [Suspect]
     Active Substance: TESTOSTERONE
     Route: 065
  3. HYPERICUM PERFORATUM\ST. JOHN^S WORT [Suspect]
     Active Substance: HYPERICUM PERFORATUM\ST. JOHN^S WORT
     Route: 065
  4. FLUOXETINE [Suspect]
     Active Substance: FLUOXETINE HYDROCHLORIDE
     Route: 065

REACTIONS (5)
  - Serotonin syndrome [Unknown]
  - Tachycardia [Unknown]
  - Abdominal pain [Unknown]
  - Chest pain [Unknown]
  - Nausea [Unknown]
